FAERS Safety Report 4330590-9 (Version None)
Quarter: 2004Q2

REPORT INFORMATION
  Report Type: 
  Country: None (occurrence: None)
  Receive Date: 20040402
  Receipt Date: 20030505
  Transmission Date: 20050107
  Serious: Yes (Other)
  Sender: FDA-Public Use
  Company Number: US-ROCHE-337533

PATIENT
  Age: 51 Year
  Sex: Female
  Weight: 99.8 kg

DRUGS (10)
  1. COPEGUS [Suspect]
     Indication: HEPATITIS C
     Route: 048
     Dates: start: 20030204
  2. COPEGUS [Suspect]
     Dosage: DOSAGE UNSPECIFIED, GRADUALLY INCREASING.
     Route: 048
  3. COPEGUS [Suspect]
     Route: 048
     Dates: start: 20030503
  4. COPEGUS [Suspect]
     Route: 048
     Dates: start: 20030504
  5. PEGASYS [Suspect]
     Indication: HEPATITIS C
     Dosage: TAKEN EVERY WEEK
     Route: 058
     Dates: start: 20030204, end: 20031215
  6. ALLEGRA [Concomitant]
     Route: 048
  7. ACIPHEX [Concomitant]
     Route: 048
  8. LEVOTHYROXINE SODIUM [Concomitant]
     Route: 048
  9. TRIAMTERENE AND HYDROCHLOROTHIAZIDE [Concomitant]
     Indication: HYPERTENSION
     Route: 048
  10. ZOLOFT [Concomitant]
     Indication: DEPRESSION
     Route: 048
     Dates: start: 20030115

REACTIONS (9)
  - ARTHRITIS [None]
  - ASTHMA [None]
  - BREAST TENDERNESS [None]
  - HAEMOGLOBIN DECREASED [None]
  - HERPES ZOSTER [None]
  - NAUSEA [None]
  - VAGINAL MYCOSIS [None]
  - VOMITING [None]
  - WEIGHT DECREASED [None]
